FAERS Safety Report 12282568 (Version 2)
Quarter: 2016Q2

REPORT INFORMATION
  Report Type: Spontaneous
  Country: GB (occurrence: GB)
  Receive Date: 20160419
  Receipt Date: 20160421
  Transmission Date: 20160815
  Serious: Yes (Disabling)
  Sender: FDA-Public Use
  Company Number: GB-009507513-1604GBR011125

PATIENT
  Age: 34 Year
  Sex: Female
  Weight: 63.5 kg

DRUGS (1)
  1. NEXPLANON [Suspect]
     Active Substance: ETONOGESTREL
     Indication: CHEMICAL CONTRACEPTION
     Route: 059
     Dates: start: 20150916, end: 20160323

REACTIONS (17)
  - Back pain [Recovering/Resolving]
  - Mood swings [Not Recovered/Not Resolved]
  - Thinking abnormal [Unknown]
  - Headache [Recovering/Resolving]
  - Depression [Not Recovered/Not Resolved]
  - Somnolence [Recovering/Resolving]
  - Dyspareunia [Unknown]
  - Menorrhagia [Recovering/Resolving]
  - Implant site pain [Recovered/Resolved]
  - Emotional distress [Recovering/Resolving]
  - Increased appetite [Recovering/Resolving]
  - Anxiety [Recovering/Resolving]
  - Migraine [Recovering/Resolving]
  - Abnormal weight gain [Recovering/Resolving]
  - Loss of libido [Not Recovered/Not Resolved]
  - Influenza like illness [Recovered/Resolved with Sequelae]
  - Insomnia [Recovering/Resolving]

NARRATIVE: CASE EVENT DATE: 20150916
